FAERS Safety Report 10431505 (Version 5)
Quarter: 2015Q1

REPORT INFORMATION
  Report Type: Spontaneous
  Country: US (occurrence: US)
  Receive Date: 20140904
  Receipt Date: 20150303
  Transmission Date: 20150720
  Serious: Yes (Hospitalization)
  Sender: FDA-Public Use
  Company Number: US-UNITED THERAPEUTICS-UNT-2014-006274

PATIENT
  Age: 59 Year
  Sex: Female
  Weight: 58.96 kg

DRUGS (8)
  1. REVATIO [Concomitant]
     Active Substance: SILDENAFIL CITRATE
     Indication: PRODUCT USED FOR UNKNOWN INDICATION
  2. LETAIRIS [Concomitant]
     Active Substance: AMBRISENTAN
     Indication: PRODUCT USED FOR UNKNOWN INDICATION
  3. COUMADIN [Concomitant]
     Active Substance: WARFARIN SODIUM
     Indication: PRODUCT USED FOR UNKNOWN INDICATION
  4. REMODULIN [Suspect]
     Active Substance: TREPROSTINIL
     Dosage: 0.188 ?G/KG, CONTINUING
     Route: 058
     Dates: start: 20140612
  5. REMODULIN [Suspect]
     Active Substance: TREPROSTINIL
     Dosage: 0.118 ?G/KG, CONTINUING
     Route: 058
     Dates: start: 20140819
  6. REMODULIN [Suspect]
     Active Substance: TREPROSTINIL
     Dosage: 0.096 ?G/KG, CONTINUING
     Route: 058
     Dates: start: 20120819
  7. REMODULIN [Suspect]
     Active Substance: TREPROSTINIL
     Indication: PULMONARY ARTERIAL HYPERTENSION
     Dosage: 0.118 ?G/KG, CONTINUING
     Route: 058
     Dates: start: 20130110
  8. REMODULIN [Suspect]
     Active Substance: TREPROSTINIL
     Dosage: 0.118 ?G/KG, CONTINUING
     Route: 058
     Dates: start: 20120819

REACTIONS (4)
  - Dyspnoea [Unknown]
  - Cholecystitis infective [Recovered/Resolved]
  - Oxygen saturation decreased [Unknown]
  - Mental status changes [Recovered/Resolved]

NARRATIVE: CASE EVENT DATE: 20140818
